FAERS Safety Report 5911696-7 (Version None)
Quarter: 2008Q4

REPORT INFORMATION
  Report Type: 
  Country: None (occurrence: None)
  Receive Date: 20081007
  Receipt Date: 20080926
  Transmission Date: 20090506
  Serious: Yes (Hospitalization)
  Sender: FDA-Public Use
  Company Number: US-ELI_LILLY_AND_COMPANY-US200809006304

PATIENT
  Sex: Male
  Weight: 78.912 kg

DRUGS (19)
  1. BYETTA [Suspect]
     Indication: TYPE 2 DIABETES MELLITUS
     Dosage: 5 UG, 2/D
     Route: 058
     Dates: start: 20080501, end: 20080801
  2. BYETTA [Suspect]
     Dosage: 10 UG, 2/D
     Route: 058
     Dates: start: 20080801
  3. METOPROLOL TARTRATE [Concomitant]
     Indication: CARDIAC DISORDER
     Dosage: 150 MG, DAILY (1/D)
  4. ACTOS [Concomitant]
     Indication: TYPE 2 DIABETES MELLITUS
     Dosage: 45 MG, AS NEEDED
  5. COZAAR [Concomitant]
     Indication: CARDIAC DISORDER
     Dosage: 1000 MG, DAILY (1/D)
  6. GLUCOTROL [Concomitant]
     Indication: TYPE 2 DIABETES MELLITUS
     Dosage: 10 MG, DAILY (1/D)
  7. MULTI-VITAMIN [Concomitant]
     Indication: VITAMIN SUPPLEMENTATION
     Dosage: UNK, DAILY (1/D)
  8. ASPIRIN [Concomitant]
     Indication: CARDIAC DISORDER
     Dosage: 325 MG, DAILY (1/D)
  9. METFORMIN HCL [Concomitant]
     Indication: TYPE 2 DIABETES MELLITUS
     Dosage: 1000 MG, 2/D
  10. METFORMIN HCL [Concomitant]
     Dosage: 500 MG, DAILY (1/D)
  11. LIPITOR [Concomitant]
     Indication: BLOOD CHOLESTEROL
     Dosage: 20 MG, DAILY (1/D)
  12. PLAVIX [Concomitant]
     Indication: CARDIAC DISORDER
     Dosage: 75 MG, 2/D
  13. OMEPRAZOLE [Concomitant]
     Indication: ANTACID THERAPY
     Dosage: 20 MG, DAILY (1/D)
  14. ISOSORBIDE [Concomitant]
     Indication: ANGINA PECTORIS
     Dosage: 60 MG, DAILY (1/D)
  15. ISOSORBIDE [Concomitant]
     Dosage: 2.5 MG, AS NEEDED
  16. NITROGLYCERIN [Concomitant]
     Dosage: UNK, AS NEEDED
     Route: 048
  17. NITROGLYCERIN [Concomitant]
     Dosage: UNK, AS NEEDED
     Route: 060
     Dates: start: 20080922, end: 20080922
  18. CELEBREX [Concomitant]
     Dates: end: 20080901
  19. ANTACID TAB [Concomitant]
     Dates: end: 20080901

REACTIONS (9)
  - BLOOD GLUCOSE DECREASED [None]
  - BLOOD GLUCOSE INCREASED [None]
  - CHEST PAIN [None]
  - COLD SWEAT [None]
  - DIZZINESS [None]
  - GASTRITIS [None]
  - INCORRECT DOSE ADMINISTERED [None]
  - MYOCARDIAL INFARCTION [None]
  - VOMITING [None]
